FAERS Safety Report 10088939 (Version 2)
Quarter: 2014Q2

REPORT INFORMATION
  Report Type: Spontaneous
  Country: ES (occurrence: ES)
  Receive Date: 20140421
  Receipt Date: 20140421
  Transmission Date: 20141212
  Serious: Yes (Other)
  Sender: FDA-Public Use
  Company Number: PHHY2014ES028485

PATIENT
  Age: 70 Year
  Sex: Female

DRUGS (2)
  1. EXJADE [Suspect]
     Indication: IRON OVERLOAD
     Dosage: 1000 MG
     Dates: start: 20140211, end: 20140213
  2. ERYTHROPOIETIN [Concomitant]
     Dosage: UNK, EVERY THREE WEEKS
     Route: 058

REACTIONS (6)
  - Abdominal distension [Unknown]
  - Nausea [Unknown]
  - Vomiting [Unknown]
  - Rash [Unknown]
  - Skin lesion [Recovering/Resolving]
  - Swelling [Recovering/Resolving]
